FAERS Safety Report 4489114-8 (Version None)
Quarter: 2004Q4

REPORT INFORMATION
  Report Type: 
  Country: None (occurrence: None)
  Receive Date: 20041029
  Receipt Date: 20041025
  Transmission Date: 20050328
  Serious: Yes (Other)
  Sender: FDA-Public Use
  Company Number: GB-ROCHE-384264

PATIENT
  Age: 63 Year
  Sex: Male
  Weight: 88 kg

DRUGS (6)
  1. ORLISTAT [Suspect]
     Indication: OBESITY
     Route: 048
     Dates: start: 20040929, end: 20041006
  2. AMLODIPINE [Concomitant]
     Route: 048
     Dates: start: 19990615
  3. TAMSULOSIN [Concomitant]
     Indication: MICTURITION DISORDER
     Route: 048
     Dates: start: 20000615
  4. OMEPRAZOLE [Concomitant]
     Indication: GASTROOESOPHAGEAL REFLUX DISEASE
     Route: 048
     Dates: start: 19990615
  5. GAVISCON [Concomitant]
     Route: 048
  6. DICLOFENAC [Concomitant]
     Route: 048
     Dates: start: 20040929

REACTIONS (4)
  - CHEST DISCOMFORT [None]
  - DIARRHOEA [None]
  - DYSPNOEA [None]
  - MALAISE [None]
